FAERS Safety Report 4909843-9 (Version None)
Quarter: 2006Q1

REPORT INFORMATION
  Report Type: 
  Country: None (occurrence: None)
  Receive Date: 20060208
  Receipt Date: 20060201
  Transmission Date: 20060701
  Serious: Yes (Other)
  Sender: FDA-Public Use
  Company Number: 221679

PATIENT
  Age: 59 Year
  Sex: Male

DRUGS (1)
  1. XOLAIR (OMALIZUMAB)PWDR + SOLVENT, INJECTION SOLN, 150 MG [Suspect]
     Indication: ASTHMA
     Dosage: 300, QW2, SUBCUTANEOUS
     Route: 058
     Dates: start: 20050608

REACTIONS (3)
  - AUTOIMMUNE DISORDER [None]
  - HYPOAESTHESIA [None]
  - JOINT SWELLING [None]
